FAERS Safety Report 24559433 (Version 1)
Quarter: 2024Q4

REPORT INFORMATION
  Report Type: Spontaneous
  Country: JP (occurrence: JP)
  Receive Date: 20241029
  Receipt Date: 20241029
  Transmission Date: 20250115
  Serious: Yes (Other)
  Sender: AMGEN
  Company Number: JP-Vifor (International) Inc.-VIT-2024-09769

PATIENT
  Age: 82 Year
  Sex: Male

DRUGS (24)
  1. TAVNEOS [Suspect]
     Active Substance: AVACOPAN
     Indication: Microscopic polyangiitis
     Dosage: INITIATED 40 MG/DAY OF AND INCREASED THE DOSE TO 60 MG/DAY
     Route: 065
  2. PREDNISOLONE [Concomitant]
     Active Substance: PREDNISOLONE
     Dosage: 50 MG/DAY (CONTINUED FOR ONE WEEK FROM THE INTRODUCTION OF AVACOPAN)
     Route: 048
  3. PREDNISOLONE [Concomitant]
     Active Substance: PREDNISOLONE
     Dosage: 40 MG/DAY (FOLLOWING 50 MG/DAY, FOR ONE WEEK)
     Route: 048
  4. PREDNISOLONE [Concomitant]
     Active Substance: PREDNISOLONE
     Dosage: 30 MG/DAY (FOLLOWING 40 MG/DAY, FOR ONE WEEK)
     Route: 048
  5. PREDNISOLONE [Concomitant]
     Active Substance: PREDNISOLONE
     Dosage: 25 MG/DAY (FOLLOWING 30 MG/DAY, FOR ONE WEEK)
     Route: 048
  6. PREDNISOLONE [Concomitant]
     Active Substance: PREDNISOLONE
     Dosage: 20 MG/DAY (FOLLOWING 25 MG/DAY)
     Route: 048
  7. PREDNISOLONE [Concomitant]
     Active Substance: PREDNISOLONE
     Dosage: 15 MG/DAY (FOLLOWING 20 MG/DAY, FOR TWO WEEK)
     Route: 048
  8. PREDNISOLONE [Concomitant]
     Active Substance: PREDNISOLONE
     Dosage: 12.5 MG/DAY (FOLLOWING 15 MG/DAY, FOR TWO WEEK)
     Route: 048
  9. PREDNISOLONE [Concomitant]
     Active Substance: PREDNISOLONE
     Dosage: 10 MG/DAY (FOLLOWING 12.5 MG/DAY, FOR TWO WEEK),
     Route: 048
  10. PREDNISOLONE [Concomitant]
     Active Substance: PREDNISOLONE
     Dosage: 8 MG/DAY (FOLLOWING 10 MG/DAY)
     Route: 048
  11. URSODIOL [Concomitant]
     Active Substance: URSODIOL
     Dosage: 400 MG/DAY (STARTED AT THE INTRODUCTION OF AVACOPAN
     Route: 048
  12. CLOPIDOGREL [Concomitant]
     Active Substance: CLOPIDOGREL BISULFATE
     Route: 048
  13. CILOSTAZOL [Concomitant]
     Active Substance: CILOSTAZOL
     Dosage: UNK
     Route: 048
  14. RABEPRAZOLE [Concomitant]
     Active Substance: RABEPRAZOLE
     Route: 048
  15. PITAVASTATIN [Concomitant]
     Active Substance: PITAVASTATIN
     Route: 048
  16. ICOSAPENT ETHYL [Concomitant]
     Active Substance: ICOSAPENT ETHYL
  17. TENELIGLIPTIN [Concomitant]
     Active Substance: TENELIGLIPTIN
     Dosage: 20 MG/DAY (FROM THE WEEK OF THE INTRODUCTION OF AVACOPAN)
     Route: 048
  18. SULFAMETHOXAZOLE\TRIMETHOPRIM [Concomitant]
     Active Substance: SULFAMETHOXAZOLE\TRIMETHOPRIM
     Dosage: 0.5 TABLET/DAY, THREE TIMES A WEEK (FOR ONE WEEK, STARTING FROM ONE WEEK AFTER THE INTRODUCTION OF A
     Route: 048
  19. AMLODIPINE [Concomitant]
     Active Substance: AMLODIPINE BESYLATE
     Dosage: 5 MG/DAY (FROM THE WEEK OF THE INTRODUCTION OF AVACOPAN)
     Route: 048
  20. CANAGLIFLOZIN [Concomitant]
     Active Substance: CANAGLIFLOZIN
     Dosage: 100 MG/DAY (STARTING FROM TWO WEEKS AFTER THE INTRODUCTION OF AVACOPAN)
     Route: 048
  21. ALFACALCIDOL [Concomitant]
     Active Substance: ALFACALCIDOL
     Dosage: 0.25 MICRO GRAM/DAY (STARTING FROM SIX WEEKS AFTER THE INTRODUCTION OF AVACOPAN)
     Route: 048
  22. VALGANCICLOVIR [Concomitant]
     Active Substance: VALGANCICLOVIR
     Dosage: 900 MG/DAY (FOR 12 DAYS, STARTING FROM SEVEN WEEKS AFTER THE INTRODUCTION OF AVACOPAN)
     Route: 048
  23. OLODATEROL\TIOTROPIUM [Concomitant]
     Active Substance: OLODATEROL\TIOTROPIUM
     Dosage: (INHALATION,STARTING FROM FOUR WEEKS AFTER THE INTRODUCTION OF AVACOPAN),
     Route: 045
  24. INSULIN ASPART [Concomitant]
     Active Substance: INSULIN ASPART
     Dosage: INSULIN ASPART (SUBCUTANEOUS INJECTION, DOSE WAS DEPENDENT ON BLOOD GLUCOSE LEVEL)
     Route: 058

REACTIONS (1)
  - Cytomegalovirus infection reactivation [Unknown]
